FAERS Safety Report 6266165-4 (Version None)
Quarter: 2009Q3

REPORT INFORMATION
  Report Type: 
  Country: None (occurrence: None)
  Receive Date: 20090713
  Receipt Date: 20090629
  Transmission Date: 20100115
  Serious: Yes (Other)
  Sender: FDA-Public Use
  Company Number: CA-MYLANLABS-2009S1011530

PATIENT
  Age: 81 Year
  Sex: Male

DRUGS (8)
  1. CLARITHROMYCIN [Suspect]
     Indication: HELICOBACTER GASTRITIS
     Dosage: 500 MG TWICE A DAY
  2. DURAGESIC-100 [Interacting]
     Indication: NECK PAIN
     Dosage: TRANSDERMAL PATCH 200 MICROGRAMS/HOUR CHANGED EVERY 48 HOURS
     Route: 062
  3. METRONIDAZOLE [Concomitant]
     Indication: HELICOBACTER GASTRITIS
     Dosage: 250MG FOUR TIMES DAILY
  4. ALBUTEROL [Concomitant]
     Route: 055
  5. IPRATROPIUM BROMIDE [Concomitant]
     Route: 055
  6. PREDNISONE [Concomitant]
     Route: 048
  7. LEVOFLOXACIN [Concomitant]
     Route: 048
  8. VANCOMYCIN [Concomitant]
     Route: 042

REACTIONS (2)
  - DRUG INTERACTION [None]
  - RESPIRATORY DEPRESSION [None]
